FAERS Safety Report 10223040 (Version 3)
Quarter: 2014Q3

REPORT INFORMATION
  Report Type: Spontaneous
  Country: DE (occurrence: DE)
  Receive Date: 20140607
  Receipt Date: 20140812
  Transmission Date: 20150326
  Serious: Yes (Other)
  Sender: FDA-Public Use
  Company Number: CHPA2014DE007713

PATIENT
  Sex: Male

DRUGS (2)
  1. DICLOFENAC [Suspect]
     Active Substance: DICLOFENAC
     Indication: TENOSYNOVITIS
     Route: 065
  2. VOLTAREN SCHMERZGEL [Suspect]
     Active Substance: DICLOFENAC DIETHYLAMINE
     Indication: TENOSYNOVITIS
     Dosage: UNK, BID
     Route: 061

REACTIONS (7)
  - Application site erythema [Recovered/Resolved]
  - Wrong technique in drug usage process [Unknown]
  - Application site pustules [Recovered/Resolved]
  - Application site pruritus [Recovered/Resolved]
  - Burning sensation [Recovered/Resolved]
  - Hypersensitivity [Recovered/Resolved]
  - Peripheral swelling [Recovered/Resolved]
